FAERS Safety Report 4367006-2 (Version None)
Quarter: 2004Q2

REPORT INFORMATION
  Report Type: 
  Country: None (occurrence: None)
  Receive Date: 20040527
  Receipt Date: 20040527
  Transmission Date: 20050107
  Serious: No
  Sender: FDA-Public Use
  Company Number: None

PATIENT
  Age: 43 Year
  Sex: Male
  Weight: 81.6475 kg

DRUGS (2)
  1. PEG-INTRON [Suspect]
     Indication: HEPATITIS C
     Dosage: PEG ITRON INJECTION 1 PER WK
     Dates: start: 20020201
  2. REBITRON 1000 MG DAILY [Suspect]
     Dosage: REBITRON 1000 MG ORAL DAILY
     Route: 048
     Dates: start: 20030701

REACTIONS (3)
  - CARDIAC DISORDER [None]
  - HYPERTENSION [None]
  - MUSCLE DISORDER [None]
